FAERS Safety Report 5381619-0 (Version None)
Quarter: 2007Q2

REPORT INFORMATION
  Report Type: 
  Country: None (occurrence: None)
  Receive Date: 20070629
  Receipt Date: 20060720
  Transmission Date: 20071010
  Serious: Yes (Other)
  Sender: FDA-Public Use
  Company Number: 2006091296

PATIENT
  Age: 39 Year
  Sex: Female
  Weight: 51.7101 kg

DRUGS (3)
  1. ZOLOFT [Suspect]
     Indication: ANXIETY
     Dosage: 12.5 MG (12.5 MG, 1 IN 1 D)
     Dates: start: 20060715, end: 20060718
  2. MULTI-VITAMINS [Concomitant]
  3. IRBESARTAN [Concomitant]

REACTIONS (6)
  - ABDOMINAL PAIN [None]
  - ANXIETY [None]
  - COLD SWEAT [None]
  - DIARRHOEA [None]
  - HYPERHIDROSIS [None]
  - PALPITATIONS [None]
